FAERS Safety Report 16406119 (Version 1)
Quarter: 2019Q2

REPORT INFORMATION
  Report Type: Spontaneous
  Country: US (occurrence: US)
  Receive Date: 20190607
  Receipt Date: 20190607
  Transmission Date: 20190711
  Serious: No
  Sender: FDA-Public Use
  Company Number: US-ALLERGAN-1835809US

PATIENT
  Sex: Female

DRUGS (3)
  1. VIBERZI [Suspect]
     Active Substance: ELUXADOLINE
     Indication: DIARRHOEA
     Dosage: UNK, BID
     Route: 065
  2. VIBERZI [Suspect]
     Active Substance: ELUXADOLINE
     Dosage: UNK, QD
     Route: 048
  3. VIBERZI [Suspect]
     Active Substance: ELUXADOLINE
     Indication: IRRITABLE BOWEL SYNDROME
     Dosage: ONE AND HALF
     Route: 065

REACTIONS (3)
  - Wrong technique in product usage process [Unknown]
  - Constipation [Recovered/Resolved]
  - Off label use [Unknown]
